FAERS Safety Report 4787465-0 (Version None)
Quarter: 2005Q4

REPORT INFORMATION
  Report Type: 
  Country: None (occurrence: None)
  Receive Date: 20051003
  Receipt Date: 20050922
  Transmission Date: 20060501
  Serious: Yes (Other)
  Sender: FDA-Public Use
  Company Number: 2005126592

PATIENT
  Age: 74 Year
  Sex: Male
  Weight: 91.173 kg

DRUGS (2)
  1. VIAGRA [Suspect]
     Indication: PHIMOSIS
     Dosage: 50 MG (50 MG, UNKNOWN), ORAL
     Route: 048
     Dates: start: 20000712
  2. VIAGRA [Suspect]
     Indication: PREPUCE REDUNDANT
     Dosage: 50 MG (50 MG, UNKNOWN), ORAL
     Route: 048
     Dates: start: 20000712

REACTIONS (2)
  - BLINDNESS UNILATERAL [None]
  - VISUAL DISTURBANCE [None]
